FAERS Safety Report 5867602-7 (Version None)
Quarter: 2008Q3

REPORT INFORMATION
  Report Type: 
  Country: None (occurrence: None)
  Receive Date: 20080902
  Receipt Date: 20071130
  Transmission Date: 20090109
  Serious: No
  Sender: FDA-Public Use
  Company Number: US-ABBOTT-07P-163-0426863-00

PATIENT
  Sex: Female
  Weight: 95.45 kg

DRUGS (4)
  1. DEPAKOTE ER [Suspect]
     Indication: MOOD SWINGS
     Route: 048
     Dates: start: 20070801
  2. PAROXETINE MESILATE [Concomitant]
     Indication: DEPRESSION
     Route: 048
  3. TIZANIDINE HYDROCHLORIDE [Concomitant]
     Indication: DRUG USE FOR UNKNOWN INDICATION
     Route: 048
  4. ESOMEPRAZOLE MAGNESIUM [Concomitant]
     Indication: DRUG USE FOR UNKNOWN INDICATION
     Route: 048

REACTIONS (1)
  - TREMOR [None]
